FAERS Safety Report 7417660-3 (Version None)
Quarter: 2011Q2

REPORT INFORMATION
  Report Type: 
  Country: None (occurrence: None)
  Receive Date: 20110415
  Receipt Date: 20110405
  Transmission Date: 20111010
  Serious: Yes (Hospitalization)
  Sender: FDA-Public Use
  Company Number: JP-ALEXION-A201100059

PATIENT
  Age: 49 Year
  Sex: Female

DRUGS (11)
  1. PANCREAZE [Concomitant]
     Dosage: UNK
     Dates: start: 20101012
  2. PROBIOTICA [Concomitant]
     Dosage: UNK
     Dates: start: 20100927, end: 20101011
  3. MEILAX [Concomitant]
  4. LENDORMIN [Concomitant]
  5. SOLIRIS [Suspect]
     Dosage: 900 MG, Q2W
     Route: 042
  6. GUAIFENESIN W/PHENYLEPHRINE [Concomitant]
  7. SOLIRIS [Suspect]
     Indication: PAROXYSMAL NOCTURNAL HAEMOGLOBINURIA
     Dosage: 600 MG, UNK
     Route: 042
     Dates: start: 20100720
  8. SELBEX [Concomitant]
  9. INCREMIN [Concomitant]
     Dosage: UNK
     Dates: start: 20100727, end: 20100927
  10. VITAMEDIN [Concomitant]
     Dosage: UNK
     Dates: start: 20101026
  11. CONSTAN [Concomitant]

REACTIONS (6)
  - DIZZINESS [None]
  - ARTHRALGIA [None]
  - DEPRESSION [None]
  - MUSCLE SPASMS [None]
  - CONDITION AGGRAVATED [None]
  - INSOMNIA [None]
